FAERS Safety Report 12310573 (Version 4)
Quarter: 2016Q4

REPORT INFORMATION
  Report Type: Spontaneous
  Country: JP (occurrence: JP)
  Receive Date: 20160427
  Receipt Date: 20161107
  Transmission Date: 20170207
  Serious: Yes (Life-Threatening, Other)
  Sender: FDA-Public Use
  Company Number: JP-ASTELLAS-2016JP006327

PATIENT
  Age: 34 Year
  Sex: Female
  Weight: 61 kg

DRUGS (4)
  1. BAYASPIRIN [Concomitant]
     Active Substance: ASPIRIN
     Indication: SYSTEMIC LUPUS ERYTHEMATOSUS
     Route: 048
  2. PREDONINE [Suspect]
     Active Substance: PREDNISOLONE\PREDNISOLONE ACETATE\PREDNISOLONE SODIUM SUCCINATE
     Indication: SYSTEMIC LUPUS ERYTHEMATOSUS
     Route: 048
     Dates: start: 20141226
  3. PROGRAF [Suspect]
     Active Substance: TACROLIMUS\TACROLIMUS ANHYDROUS
     Indication: SYSTEMIC LUPUS ERYTHEMATOSUS
     Route: 048
     Dates: start: 20140511
  4. LANSOPRAZOLE. [Concomitant]
     Active Substance: LANSOPRAZOLE
     Indication: SYSTEMIC LUPUS ERYTHEMATOSUS
     Route: 048

REACTIONS (4)
  - HELLP syndrome [Recovered/Resolved]
  - Premature delivery [Recovered/Resolved]
  - Off label use [Unknown]
  - Maternal exposure during pregnancy [Unknown]

NARRATIVE: CASE EVENT DATE: 20140511
